FAERS Safety Report 10027226 (Version 1)
Quarter: 2014Q1

REPORT INFORMATION
  Report Type: Spontaneous
  Country: FR (occurrence: FR)
  Receive Date: 20140321
  Receipt Date: 20140321
  Transmission Date: 20141002
  Serious: Yes (Hospitalization)
  Sender: FDA-Public Use
  Company Number: PHHY2014FR029328

PATIENT
  Age: 65 Year
  Sex: Female

DRUGS (6)
  1. CUBICIN [Suspect]
     Indication: BRAIN ABSCESS
     Route: 042
     Dates: start: 20140227
  2. CUBICIN [Suspect]
     Indication: OFF LABEL USE
  3. VANCOMYCIN [Suspect]
     Indication: BRAIN ABSCESS
     Route: 042
     Dates: start: 20140213, end: 20140226
  4. TIENAM [Suspect]
     Indication: BRAIN ABSCESS
     Route: 042
     Dates: start: 20140220
  5. KEPPRA [Suspect]
     Dates: start: 20140213, end: 20140226
  6. INEXIUM//ESOMEPRAZOLE MAGNESIUM [Suspect]
     Route: 048
     Dates: start: 20140214

REACTIONS (2)
  - Hepatocellular injury [Not Recovered/Not Resolved]
  - Blood potassium decreased [Unknown]
